FAERS Safety Report 10614149 (Version 1)
Quarter: 2014Q4

REPORT INFORMATION
  Report Type: Spontaneous
  Country: US (occurrence: US)
  Receive Date: 20141128
  Receipt Date: 20141128
  Transmission Date: 20150529
  Serious: No
  Sender: FDA-Public Use
  Company Number: US-PFIZER INC-2014327096

PATIENT
  Age: 56 Year
  Sex: Male
  Weight: 73 kg

DRUGS (4)
  1. XANAX [Suspect]
     Active Substance: ALPRAZOLAM
     Dosage: UNK
  2. ATIVAN [Suspect]
     Active Substance: LORAZEPAM
     Dosage: UNK
  3. KLONOPIN [Suspect]
     Active Substance: CLONAZEPAM
     Dosage: UNK
  4. VALIUM [Suspect]
     Active Substance: DIAZEPAM
     Dosage: UNK

REACTIONS (1)
  - Drug withdrawal syndrome [Not Recovered/Not Resolved]
